FAERS Safety Report 24735662 (Version 2)
Quarter: 2025Q1

REPORT INFORMATION
  Report Type: Spontaneous
  Country: CN (occurrence: CN)
  Receive Date: 20241216
  Receipt Date: 20250102
  Transmission Date: 20250409
  Serious: Yes (Other)
  Sender: CSL BEHRING
  Company Number: CN-BEH-2024187007

PATIENT
  Age: 74 Year
  Sex: Female
  Weight: 49 kg

DRUGS (2)
  1. ALBURX [Suspect]
     Active Substance: ALBUMIN HUMAN
     Indication: Hypoproteinaemia
     Dosage: 30 G, QD
     Route: 041
     Dates: start: 20241121
  2. ALBURX [Suspect]
     Active Substance: ALBUMIN HUMAN
     Dosage: 30 G, QD
     Route: 041
     Dates: start: 20241124, end: 20241124

REACTIONS (2)
  - Vomiting [Recovering/Resolving]
  - Nausea [Recovering/Resolving]

NARRATIVE: CASE EVENT DATE: 20241124
